FAERS Safety Report 5159029-0 (Version None)
Quarter: 2006Q4

REPORT INFORMATION
  Report Type: 
  Country: None (occurrence: None)
  Receive Date: 20061117
  Receipt Date: 20061113
  Transmission Date: 20070319
  Serious: Yes (Other)
  Sender: FDA-Public Use
  Company Number: 163-20785-06100073

PATIENT
  Age: 44 Year
  Sex: Female

DRUGS (8)
  1. THALOMID [Suspect]
     Indication: MULTIPLE MYELOMA
     Dosage: 200 MG, 4 IN 1 D, ORAL
     Route: 048
     Dates: start: 20060110, end: 20060918
  2. THALOMID [Suspect]
     Indication: MULTIPLE MYELOMA
     Dosage: 200 MG, 4 IN 1 D, ORAL
     Route: 048
     Dates: start: 20060901
  3. COUMADIN [Suspect]
  4. ALLOPURINOL [Concomitant]
  5. AMARYL [Concomitant]
  6. PREVACID [Concomitant]
  7. ADVAIR DISKUS 100/50 [Concomitant]
  8. FENTANYL (FENTANYL) (POLTICE OR PATCH) [Concomitant]

REACTIONS (1)
  - BLOOD HUMAN CHORIONIC GONADOTROPIN INCREASED [None]
